FAERS Safety Report 20864783 (Version 2)
Quarter: 2022Q3

REPORT INFORMATION
  Report Type: Spontaneous
  Country: US (occurrence: US)
  Receive Date: 20220524
  Receipt Date: 20220708
  Transmission Date: 20221027
  Serious: No
  Sender: FDA-Public Use
  Company Number: US-TEVA-2022-US-2032486

PATIENT
  Sex: Female

DRUGS (3)
  1. PROAIR HFA [Suspect]
     Active Substance: ALBUTEROL SULFATE
     Indication: Asthma
     Dosage: DOSE: 1 PUFF INHALED ORALLY EVERY 4 HOURS AS NEEDED (INHALATION AEROSOL SOLUTION)
     Route: 048
     Dates: start: 20220224
  2. ADVAIR DISKUS [Suspect]
     Active Substance: FLUTICASONE PROPIONATE\SALMETEROL XINAFOATE
     Indication: Asthma
     Dosage: 2 DOSAGE FORMS DAILY; DOSE: 250-50 MCG 1 PUFF INHALED ORALLY 2 TIMES A DAY (INHALATION AEROSOL POWDE
     Route: 048
     Dates: start: 20201012
  3. NAPROXEN [Concomitant]
     Active Substance: NAPROXEN
     Indication: Product used for unknown indication
     Dosage: 1000 MILLIGRAM DAILY; 500 MG EVERY 12 HOURS WITH MILK OR FOOD
     Route: 048
     Dates: start: 20210928

REACTIONS (1)
  - Tooth disorder [Unknown]
